FAERS Safety Report 5155999-5 (Version None)
Quarter: 2006Q4

REPORT INFORMATION
  Report Type: 
  Country: None (occurrence: None)
  Receive Date: 20061122
  Receipt Date: 20060808
  Transmission Date: 20070319
  Serious: Yes (Other)
  Sender: FDA-Public Use
  Company Number: PHEH2006US10100

PATIENT
  Age: 55 Year
  Sex: Male

DRUGS (8)
  1. ZOMETA [Suspect]
     Indication: METASTASES TO BONE
     Dosage: UNK, QMO
     Route: 042
     Dates: start: 20050201
  2. LANTUS [Concomitant]
     Dosage: 50 UNITS QD
  3. HUMALOG [Concomitant]
     Dosage: PRN
  4. ACTOS /USA/ [Concomitant]
     Dosage: 45MG QD
  5. METFORMIN [Concomitant]
     Dosage: 1000 MG BID
  6. AMBIEN [Concomitant]
     Dosage: 12.5MG QD
  7. VICODIN [Concomitant]
     Dosage: 5/500MG PRN
  8. PROLEUKIN [Concomitant]

REACTIONS (10)
  - BONE DISORDER [None]
  - FISTULA [None]
  - GINGIVAL SWELLING [None]
  - ORAL SOFT TISSUE DISORDER [None]
  - OSTEOMYELITIS [None]
  - OSTEONECROSIS [None]
  - PAIN [None]
  - PRIMARY SEQUESTRUM [None]
  - SOFT TISSUE INFECTION [None]
  - TOOTH EXTRACTION [None]
